FAERS Safety Report 24582956 (Version 1)
Quarter: 2024Q4

REPORT INFORMATION
  Report Type: Spontaneous
  Country: US (occurrence: US)
  Receive Date: 20241106
  Receipt Date: 20241106
  Transmission Date: 20250115
  Serious: No
  Sender: UCB
  Company Number: US-UCBSA-2024022618

PATIENT
  Age: 22 Year
  Sex: Male

DRUGS (12)
  1. LACOSAMIDE [Suspect]
     Active Substance: LACOSAMIDE
     Indication: Epilepsy
     Dosage: UNK
  2. LACOSAMIDE [Suspect]
     Active Substance: LACOSAMIDE
     Indication: Brain neoplasm
  3. LACOSAMIDE [Suspect]
     Active Substance: LACOSAMIDE
     Indication: Gene mutation
  4. LACOSAMIDE [Suspect]
     Active Substance: LACOSAMIDE
     Indication: Off label use
  5. KEPPRA [Suspect]
     Active Substance: LEVETIRACETAM
     Indication: Epilepsy
     Dosage: 500 MILLIGRAM, 2X/DAY (BID)
  6. KEPPRA [Suspect]
     Active Substance: LEVETIRACETAM
     Indication: Brain neoplasm
  7. KEPPRA [Suspect]
     Active Substance: LEVETIRACETAM
     Indication: Gene mutation
  8. KEPPRA [Suspect]
     Active Substance: LEVETIRACETAM
     Indication: Off label use
  9. DEXAMETHASONE [Concomitant]
     Active Substance: DEXAMETHASONE
     Indication: Product used for unknown indication
     Dosage: 5-DAY DEXAMETHASONE TAPER
  10. DOXORUBICIN [Concomitant]
     Active Substance: DOXORUBICIN
     Indication: Chemotherapy
     Dosage: 6 CYCLES
  11. IFOSFAMIDE [Concomitant]
     Active Substance: IFOSFAMIDE
     Indication: Chemotherapy
     Dosage: 6 CYCLES
  12. ASPIRIN [Concomitant]
     Active Substance: ASPIRIN
     Indication: Product used for unknown indication
     Dosage: UNK

REACTIONS (1)
  - No adverse event [Unknown]
